FAERS Safety Report 6348836-4 (Version None)
Quarter: 2009Q3

REPORT INFORMATION
  Report Type: 
  Country: None (occurrence: None)
  Receive Date: 20090911
  Receipt Date: 20080508
  Transmission Date: 20100115
  Serious: Yes (Hospitalization, Other)
  Sender: FDA-Public Use
  Company Number: US-ASTRAZENECA-2007UW18686

PATIENT
  Age: 51 Year
  Sex: Male
  Weight: 140.6 kg

DRUGS (18)
  1. SEROQUEL [Suspect]
     Route: 048
     Dates: start: 20021001
  2. SEROQUEL [Suspect]
     Route: 048
     Dates: end: 20060101
  3. RISPERDAL [Concomitant]
     Indication: SLEEP DISORDER
     Route: 048
     Dates: start: 20030618
  4. RISPERDAL [Concomitant]
     Indication: DEPRESSION
     Route: 048
     Dates: start: 20030618
  5. LISINOPRIL [Concomitant]
     Dosage: 20 MG-80 MG
     Route: 048
     Dates: start: 19990707
  6. ATENOLOL [Concomitant]
     Route: 048
     Dates: start: 20030226
  7. HUMULIN 70/30 [Concomitant]
     Dosage: 35 UNITS IN MORNING AND 25 UNITS IN EVENING, 25 UNITS BID
     Route: 058
     Dates: start: 19990707
  8. NITROGLYCERIN [Concomitant]
     Indication: CHEST PAIN
     Dosage: 0.4 MG Q 5 MINUTES, 3 DOSES PRN
     Route: 060
     Dates: start: 19990707
  9. NEVIRAPINE [Concomitant]
     Route: 048
     Dates: start: 20030226
  10. AMLODIPINE [Concomitant]
     Route: 048
     Dates: start: 19990707
  11. ASPIRIN [Concomitant]
     Route: 048
     Dates: start: 20030618
  12. KALETRA [Concomitant]
     Dates: start: 20030723
  13. AMPRENAVIR [Concomitant]
     Dates: start: 20030723
  14. ZIDOVUDINE [Concomitant]
     Indication: HIV INFECTION
     Route: 048
     Dates: start: 20030226
  15. CLONIDINE [Concomitant]
     Indication: HYPERTENSION
     Dosage: 0.1 MG DAILY, 0.1 MG TWICE A DAY
     Route: 048
     Dates: start: 20030723
  16. METOCLOPRAMIDE [Concomitant]
     Indication: DIABETIC GASTROPATHY
     Dates: start: 20030101
  17. MIRTAZAPINE [Concomitant]
     Indication: DEPRESSION
     Dates: start: 20030723
  18. TRAZODONE [Concomitant]
     Indication: DEPRESSION
     Route: 048
     Dates: start: 20030618

REACTIONS (9)
  - DIABETES MELLITUS [None]
  - DIABETES MELLITUS INADEQUATE CONTROL [None]
  - DIABETIC FOOT [None]
  - DIABETIC GASTROPATHY [None]
  - DIABETIC NEUROPATHY [None]
  - DIABETIC RETINOPATHY [None]
  - NEUROPATHY PERIPHERAL [None]
  - PANCREATITIS [None]
  - TYPE 2 DIABETES MELLITUS [None]
